FAERS Safety Report 6173988-9 (Version None)
Quarter: 2009Q2

REPORT INFORMATION
  Report Type: 
  Country: None (occurrence: None)
  Receive Date: 20090430
  Receipt Date: 20080307
  Transmission Date: 20091009
  Serious: No
  Sender: FDA-Public Use
  Company Number: US-ASTRAZENECA-2004UW02979

PATIENT
  Age: 72 Year
  Sex: Female
  Weight: 62.6 kg

DRUGS (19)
  1. NEXIUM [Suspect]
     Indication: GASTROOESOPHAGEAL REFLUX DISEASE
     Route: 048
     Dates: start: 20040214
  2. NEXIUM [Suspect]
     Indication: OESOPHAGITIS
     Route: 048
     Dates: start: 20040214
  3. NEXIUM [Suspect]
     Route: 048
     Dates: start: 20040214
  4. NEXIUM [Suspect]
     Route: 048
  5. NEXIUM [Suspect]
     Route: 048
  6. NEXIUM [Suspect]
     Route: 048
  7. NEXIUM [Suspect]
     Route: 048
     Dates: end: 20060701
  8. NEXIUM [Suspect]
     Route: 048
     Dates: end: 20060701
  9. NEXIUM [Suspect]
     Route: 048
     Dates: end: 20060701
  10. NEXIUM [Suspect]
     Route: 048
  11. NEXIUM [Suspect]
     Route: 048
  12. NEXIUM [Suspect]
     Route: 048
  13. EVISTA [Concomitant]
  14. DIAZEPAM [Concomitant]
  15. GLYCILAX [Concomitant]
  16. CITRACAL [Concomitant]
  17. VALIUM [Concomitant]
  18. MULTI-VITAMINS [Concomitant]
  19. METAMUCIL [Concomitant]

REACTIONS (13)
  - ABDOMINAL DISTENSION [None]
  - ABDOMINAL PAIN [None]
  - ARTHRALGIA [None]
  - BONE PAIN [None]
  - DEFAECATION URGENCY [None]
  - DIZZINESS [None]
  - DYSPEPSIA [None]
  - FATIGUE [None]
  - FLATULENCE [None]
  - GASTRITIS [None]
  - HEADACHE [None]
  - NAUSEA [None]
  - SEDATION [None]
